FAERS Safety Report 5232761-6 (Version None)
Quarter: 2007Q1

REPORT INFORMATION
  Report Type: 
  Country: None (occurrence: None)
  Receive Date: 20070206
  Receipt Date: 20070206
  Transmission Date: 20070707
  Serious: Yes (Other)
  Sender: FDA-Public Use
  Company Number: None

PATIENT
  Age: 85 Year
  Sex: Female
  Weight: 77.1115 kg

DRUGS (1)
  1. COLESTID [Suspect]
     Indication: HYPERLIPIDAEMIA
     Dosage: 2 TAB AT HS PO
     Route: 048
     Dates: start: 20070114, end: 20070121

REACTIONS (2)
  - MUSCLE SPASMS [None]
  - PARAESTHESIA [None]
